FAERS Safety Report 8665458 (Version 2)
Quarter: 2013Q4

REPORT INFORMATION
  Report Type: Spontaneous
  Country: JP (occurrence: JP)
  Receive Date: 20120712
  Receipt Date: 20131105
  Transmission Date: 20140711
  Serious: Yes (Other)
  Sender: FDA-Public Use
  Company Number: JP-009507513-1206USA02856

PATIENT
  Sex: 0

DRUGS (1)
  1. BONALON [Suspect]
     Route: 048

REACTIONS (1)
  - Atypical femur fracture [Unknown]
